FAERS Safety Report 9192017 (Version 1)
Quarter: 2013Q1

REPORT INFORMATION
  Report Type: Spontaneous
  Country: NO (occurrence: None)
  Receive Date: 20130325
  Receipt Date: 20130325
  Transmission Date: 20140127
  Serious: Yes (Hospitalization)
  Sender: FDA-Public Use
  Company Number: NO-011138

PATIENT
  Age: 41 Year
  Sex: Female

DRUGS (1)
  1. PICOPREP [Suspect]
     Indication: BOWEL PREPARATION
     Dosage: (2 DOSES TAKEN)
     Dates: start: 20130214, end: 20130214

REACTIONS (1)
  - Anaphylactic shock [None]
